FAERS Safety Report 7437135-5 (Version None)
Quarter: 2011Q2

REPORT INFORMATION
  Report Type: 
  Country: None (occurrence: None)
  Receive Date: 20110426
  Receipt Date: 20110418
  Transmission Date: 20111010
  Serious: Yes (Hospitalization)
  Sender: FDA-Public Use
  Company Number: NL-MEDIMMUNE-MEDI-0013076

PATIENT
  Sex: Male
  Weight: 7.62 kg

DRUGS (3)
  1. SYNAGIS [Suspect]
     Route: 030
     Dates: start: 20110316, end: 20110316
  2. SYNAGIS [Suspect]
     Route: 030
     Dates: start: 20110413, end: 20110413
  3. SYNAGIS [Suspect]
     Route: 030
     Dates: start: 20101027, end: 20101027

REACTIONS (5)
  - MALAISE [None]
  - VOMITING PROJECTILE [None]
  - ABDOMINAL PAIN [None]
  - APPENDICITIS [None]
  - APPENDIX DISORDER [None]
